FAERS Safety Report 8985606 (Version 1)
Quarter: 2012Q4

REPORT INFORMATION
  Report Type: 
  Country: US (occurrence: US)
  Receive Date: 20121226
  Receipt Date: 20121226
  Transmission Date: 20130627
  Serious: No
  Sender: FDA-Public Use
  Company Number: US-ABBOTT-12P-163-0961595-00

PATIENT
  Age: 88 Year
  Sex: Male
  Weight: 86.26 kg

DRUGS (2)
  1. LUPRON DEPOT 45 MG [Suspect]
     Indication: PROSTATE CANCER
     Dates: start: 2008
  2. BICALUTAMIDE [Concomitant]
     Indication: PROSTATE CANCER

REACTIONS (1)
  - Expired drug administered [Recovered/Resolved]
